FAERS Safety Report 9562128 (Version 1)
Quarter: 2013Q3

REPORT INFORMATION
  Report Type: Spontaneous
  Country: AU (occurrence: None)
  Receive Date: 20130925
  Receipt Date: 20130925
  Transmission Date: 20140515
  Serious: Yes (Other)
  Sender: FDA-Public Use
  Company Number: FK201304353

PATIENT
  Age: 68 Year
  Sex: Male

DRUGS (4)
  1. DEXAMETHASONE [Suspect]
     Indication: PLASMA CELL MYELOMA
  2. BORTEZOMIB [Suspect]
     Indication: PLASMA CELL MYELOMA
  3. LENALIDOMIDE [Suspect]
     Indication: PLASMA CELL MYELOMA
  4. ROMIDEPSIN [Suspect]
     Indication: PLASMA CELL MYELOMA

REACTIONS (1)
  - Cytomegalovirus chorioretinitis [None]
